FAERS Safety Report 5640569-2 (Version None)
Quarter: 2008Q1

REPORT INFORMATION
  Report Type: 
  Country: None (occurrence: None)
  Receive Date: 20080227
  Receipt Date: 20080214
  Transmission Date: 20080703
  Serious: Yes (Hospitalization)
  Sender: FDA-Public Use
  Company Number: US-AMGEN-US265630

PATIENT
  Sex: Female

DRUGS (12)
  1. PROCRIT [Suspect]
     Indication: DIALYSIS
     Route: 058
  2. COREG [Concomitant]
  3. COREG [Concomitant]
  4. CELEXA [Concomitant]
  5. CATAPRES [Concomitant]
  6. LANTUS [Concomitant]
     Route: 058
  7. ISORDIL [Concomitant]
  8. MINOXIDIL [Concomitant]
  9. ZEMPLAR [Concomitant]
  10. ZOCOR [Concomitant]
  11. IRON [Concomitant]
  12. RENAGEL [Concomitant]

REACTIONS (2)
  - CHEST PAIN [None]
  - HAEMORRHAGE INTRACRANIAL [None]
